FAERS Safety Report 6520298-3 (Version None)
Quarter: 2009Q4

REPORT INFORMATION
  Report Type: 
  Country: None (occurrence: None)
  Receive Date: 20091229
  Receipt Date: 20091217
  Transmission Date: 20100525
  Serious: Yes (Hospitalization, Other)
  Sender: FDA-Public Use
  Company Number: US-CELGENEUS-163-21880-09060044

PATIENT
  Sex: Female

DRUGS (8)
  1. REVLIMID [Suspect]
     Route: 048
     Dates: start: 20060601, end: 20060101
  2. REVLIMID [Suspect]
     Route: 048
     Dates: start: 20060701
  3. REVLIMID [Suspect]
     Route: 048
     Dates: start: 20060901
  4. REVLIMID [Suspect]
     Route: 048
     Dates: start: 20070801
  5. SYNTHROID [Concomitant]
     Indication: DRUG USE FOR UNKNOWN INDICATION
     Route: 065
  6. ASPIRIN [Concomitant]
     Indication: DRUG USE FOR UNKNOWN INDICATION
     Route: 065
  7. CITALOPRAM HYDROBROMIDE [Concomitant]
     Indication: DRUG USE FOR UNKNOWN INDICATION
     Route: 065
  8. ARICEPT [Concomitant]
     Indication: DRUG USE FOR UNKNOWN INDICATION
     Route: 065

REACTIONS (4)
  - CARDIAC PACEMAKER INSERTION [None]
  - DYSPNOEA [None]
  - HAEMOGLOBIN DECREASED [None]
  - PANCYTOPENIA [None]
